FAERS Safety Report 6115113-6 (Version None)
Quarter: 2009Q1

REPORT INFORMATION
  Report Type: 
  Country: None (occurrence: None)
  Receive Date: 20090311
  Receipt Date: 20080717
  Transmission Date: 20090719
  Serious: Yes (Hospitalization)
  Sender: FDA-Public Use
  Company Number: US200807003539

PATIENT
  Age: 46 Year
  Sex: Female

DRUGS (1)
  1. GEMZAR [Suspect]
     Indication: PANCREATIC CARCINOMA
     Dosage: 1910 MG, INTRAVENOUS
     Route: 042

REACTIONS (1)
  - BLOOD BILIRUBIN INCREASED [None]
